FAERS Safety Report 5576491-X (Version None)
Quarter: 2007Q4

REPORT INFORMATION
  Report Type: 
  Country: None (occurrence: None)
  Receive Date: 20071228
  Receipt Date: 20071220
  Transmission Date: 20080405
  Serious: Yes (Congenital Anomaly)
  Sender: FDA-Public Use
  Company Number: A0686001A

PATIENT
  Sex: Female

DRUGS (9)
  1. PAXIL [Suspect]
     Indication: ANXIETY
     Dosage: 20MG PER DAY
     Dates: end: 20060224
  2. PRENATAL VITAMINS [Concomitant]
  3. BLOOD TRANSFUSION [Concomitant]
     Dates: start: 20060227, end: 20060227
  4. PERCOCET [Concomitant]
     Dates: start: 20060220, end: 20060223
  5. CEFTIN [Concomitant]
     Dosage: 500MG TWICE PER DAY
     Dates: start: 20051122, end: 20051127
  6. FLAGYL [Concomitant]
     Dosage: 500MG TWICE PER DAY
     Dates: start: 20051116, end: 20051123
  7. DEXTROMETHORPHAN + GUAIFENESIN [Concomitant]
     Dates: start: 20050907, end: 20050915
  8. ZITHROMAX [Concomitant]
     Dosage: 250MG PER DAY
     Dates: start: 20050907, end: 20050912
  9. IBUPROFEN [Concomitant]

REACTIONS (5)
  - DRUG EXPOSURE DURING PREGNANCY [None]
  - FOETAL MOVEMENTS DECREASED [None]
  - HEART DISEASE CONGENITAL [None]
  - SHOULDER DYSTOCIA [None]
  - TACHYCARDIA FOETAL [None]
